FAERS Safety Report 6640735-3 (Version None)
Quarter: 2010Q1

REPORT INFORMATION
  Report Type: 
  Country: None (occurrence: None)
  Receive Date: 20100318
  Receipt Date: 20100304
  Transmission Date: 20100710
  Serious: Yes (Death)
  Sender: FDA-Public Use
  Company Number: DE-MYLANLABS-2010S1003592

PATIENT
  Age: 46 Year
  Sex: Male
  Weight: 73 kg

DRUGS (6)
  1. TRAMADOL HCL [Suspect]
     Indication: COMPLETED SUICIDE
  2. NICOTINE [Interacting]
     Indication: COMPLETED SUICIDE
     Dosage: HE WAS FOUND WITH 25 TRANSDERMAL NICOTINE (7MG DOSES) ATTACHED TO HIS BODY
     Route: 062
  3. NICOTINE [Interacting]
     Route: 048
  4. PARACETAMOL [Concomitant]
  5. DIPHENHYDRAMINE HYDROCHLORIDE [Concomitant]
  6. ZOPICLONE [Concomitant]
     Route: 048

REACTIONS (3)
  - CARDIAC FAILURE [None]
  - DRUG INTERACTION [None]
  - INTENTIONAL OVERDOSE [None]
